FAERS Safety Report 15657135 (Version 1)
Quarter: 2018Q4

REPORT INFORMATION
  Report Type: Spontaneous
  Country: US (occurrence: US)
  Receive Date: 20181115
  Receipt Date: 20181115
  Transmission Date: 20190205
  Serious: No
  Sender: FDA-Public Use
  Company Number: None

PATIENT
  Sex: Female

DRUGS (1)
  1. PROMACTA [Suspect]
     Active Substance: ELTROMBOPAG OLAMINE
     Indication: PRODUCT USED FOR UNKNOWN INDICATION
     Route: 048
     Dates: start: 20181106

REACTIONS (6)
  - Nasal congestion [None]
  - Nausea [None]
  - Pyrexia [None]
  - Diarrhoea [None]
  - Lymphadenopathy [None]
  - Fatigue [None]

NARRATIVE: CASE EVENT DATE: 20181114
